FAERS Safety Report 21543465 (Version 2)
Quarter: 2022Q4

REPORT INFORMATION
  Report Type: Report from Study
  Country: US (occurrence: US)
  Receive Date: 20221102
  Receipt Date: 20221115
  Transmission Date: 20230113
  Serious: Yes (Other)
  Sender: FDA-Public Use
  Company Number: US-HORIZON THERAPEUTICS-HZN-2022-007394

PATIENT

DRUGS (3)
  1. TEPEZZA [Suspect]
     Active Substance: TEPROTUMUMAB-TRBW
     Indication: Endocrine ophthalmopathy
     Dosage: 10 MG/KG, EVERY 3 WEEKS
     Route: 042
     Dates: start: 20220622
  2. TEPEZZA [Suspect]
     Active Substance: TEPROTUMUMAB-TRBW
     Indication: Basedow^s disease
     Dosage: UNK (INFUSION)
     Route: 042
     Dates: start: 20220720
  3. TEPEZZA [Suspect]
     Active Substance: TEPROTUMUMAB-TRBW
     Dosage: INFUSE 1545 MG (20MG/KG), EVERY 3 WEEKS
     Route: 042
     Dates: start: 2022, end: 2022

REACTIONS (5)
  - Gastrointestinal haemorrhage [Unknown]
  - Flank pain [Unknown]
  - Gastrointestinal disorder [Unknown]
  - Back pain [Unknown]
  - Muscle spasms [Unknown]

NARRATIVE: CASE EVENT DATE: 20220101
